FAERS Safety Report 17836797 (Version 1)
Quarter: 2020Q2

REPORT INFORMATION
  Report Type: Spontaneous
  Country: US (occurrence: US)
  Receive Date: 20200528
  Receipt Date: 20200528
  Transmission Date: 20200714
  Serious: No
  Sender: FDA-Public Use
  Company Number: US-ENDO PHARMACEUTICALS INC-2019-105538

PATIENT
  Sex: Female

DRUGS (2)
  1. MINOCYCLINE HYDROCHLORIDE. [Suspect]
     Active Substance: MINOCYCLINE HYDROCHLORIDE
     Indication: LOCALISED INFECTION
     Dosage: UNK UNKNOWN, UNKNOWN
     Route: 065
     Dates: start: 2019
  2. MINOCYCLINE HYDROCHLORIDE. [Suspect]
     Active Substance: MINOCYCLINE HYDROCHLORIDE
     Indication: CELLULITIS

REACTIONS (2)
  - Dysphagia [Unknown]
  - Abdominal pain upper [Unknown]

NARRATIVE: CASE EVENT DATE: 2019
